FAERS Safety Report 13684946 (Version 2)
Quarter: 2017Q4

REPORT INFORMATION
  Report Type: Spontaneous
  Country: FR (occurrence: FR)
  Receive Date: 20170623
  Receipt Date: 20171016
  Transmission Date: 20180320
  Serious: Yes (Hospitalization, Other)
  Sender: FDA-Public Use
  Company Number: FR-BRISTOL-MYERS SQUIBB COMPANY-BMS-2017-055073

PATIENT
  Age: 17 Year
  Sex: Male

DRUGS (2)
  1. YERVOY [Suspect]
     Active Substance: IPILIMUMAB
     Indication: MALIGNANT MELANOMA
     Dosage: 5 MG/ML, UNK
     Route: 042
     Dates: start: 20170221, end: 20170404
  2. NIVOLUMAB [Suspect]
     Active Substance: NIVOLUMAB
     Indication: MALIGNANT MELANOMA
     Dosage: 10 MG/ML, UNK
     Route: 042
     Dates: start: 20170221, end: 20170404

REACTIONS (7)
  - Malignant neoplasm progression [Unknown]
  - Influenza like illness [Unknown]
  - Hepatocellular injury [Unknown]
  - Inflammation [Unknown]
  - Lung disorder [Unknown]
  - Pyrexia [Recovered/Resolved]
  - Drug administered to patient of inappropriate age [Unknown]

NARRATIVE: CASE EVENT DATE: 20170413
